FAERS Safety Report 10899326 (Version 1)
Quarter: 2015Q1

REPORT INFORMATION
  Report Type: Spontaneous
  Country: US (occurrence: US)
  Receive Date: 20150309
  Receipt Date: 20150309
  Transmission Date: 20150721
  Serious: Yes (Hospitalization, Other)
  Sender: FDA-Public Use
  Company Number: US-MYLANLABS-2015M1007448

PATIENT

DRUGS (1)
  1. ARIXTRA [Suspect]
     Active Substance: FONDAPARINUX SODIUM
     Indication: ILL-DEFINED DISORDER
     Dosage: 2.5MG/0.5ML, UNK
     Route: 042

REACTIONS (5)
  - Rehabilitation therapy [Unknown]
  - Exposure during pregnancy [Unknown]
  - Road traffic accident [Unknown]
  - Premature baby [Unknown]
  - Impaired work ability [Unknown]

NARRATIVE: CASE EVENT DATE: 201402
